FAERS Safety Report 8100009-0 (Version None)
Quarter: 2012Q1

REPORT INFORMATION
  Report Type: 
  Country: None (occurrence: None)
  Receive Date: 20120129
  Receipt Date: 20111118
  Transmission Date: 20120608
  Serious: No
  Sender: FDA-Public Use
  Company Number: US-ABBOTT-11P-163-0875797-00

PATIENT
  Age: 60 Year
  Sex: Female

DRUGS (10)
  1. FOLIC ACID [Concomitant]
     Indication: PRODUCT USED FOR UNKNOWN INDICATION
     Dosage: 1MG TWO DAILY
  2. METFORMIN HCL [Concomitant]
     Indication: DIABETES MELLITUS
     Dosage: 3 DAILY
  3. AMBIEN [Concomitant]
     Indication: INSOMNIA
     Dosage: NIGHTLY
  4. HUMIRA [Suspect]
     Indication: RHEUMATOID ARTHRITIS
     Dates: start: 20110901
  5. VITAMIN D [Concomitant]
     Indication: PRODUCT USED FOR UNKNOWN INDICATION
     Dosage: WEEKLY
  6. METHOTREXATE [Concomitant]
     Indication: PRODUCT USED FOR UNKNOWN INDICATION
     Dosage: 4 WEEKLY
  7. BENICAR [Concomitant]
     Indication: BLOOD PRESSURE
     Dosage: 40-12.5
  8. HYDROCODONE BITARTRATE [Concomitant]
     Indication: PAIN
     Dosage: 5/325, ONE OR TWO AS REQUIRED
  9. PROAIR HFA [Concomitant]
     Indication: RESPIRATORY DISORDER
  10. PREDNISONE TAB [Concomitant]
     Indication: PRODUCT USED FOR UNKNOWN INDICATION
     Dosage: 10MG DAILY, TAPERING DOSE

REACTIONS (6)
  - COUGH [None]
  - VITAMIN D DECREASED [None]
  - BLOOD POTASSIUM DECREASED [None]
  - BLOOD PRESSURE INCREASED [None]
  - INFECTION [None]
  - DYSPNOEA [None]
